FAERS Safety Report 9135822 (Version 2)
Quarter: 2013Q1

REPORT INFORMATION
  Report Type: Spontaneous
  Country: GB (occurrence: None)
  Receive Date: 20130220
  Receipt Date: 20130314
  Transmission Date: 20140127
  Serious: Yes (Death, Other)
  Sender: FDA-Public Use
  Company Number: AUR-APL-2013-01432

PATIENT
  Age: 9 Month
  Sex: Female
  Weight: 8.5 kg

DRUGS (7)
  1. LEVETIRACETAM [Suspect]
     Indication: EPILEPSY
     Dosage: (120 MG,2 IN 1 D)
     Route: 048
     Dates: start: 20120709, end: 20121128
  2. MIDAZOLAM (MIDAZOLAM) [Suspect]
     Indication: CONVULSION
     Route: 002
     Dates: start: 20121128, end: 20121128
  3. EPILIM (VALPROATE SODIUM) [Suspect]
     Indication: CONVULSION
     Dosage: (140MG,2 IN 1 D)
     Route: 048
     Dates: start: 20120718, end: 20121128
  4. PHENYTOIN(PHENYTOIN) [Suspect]
     Indication: STATUS EPILEPTICUS
     Route: 042
     Dates: start: 20121128, end: 20121128
  5. DIAZEPAM(DIAZEPAM) [Concomitant]
  6. KEPPRA(LEVETIRACETAM) [Concomitant]
  7. PARACETAMOL(PARACETAMOL) [Concomitant]

REACTIONS (4)
  - Respiratory acidosis [None]
  - Status epilepticus [None]
  - Pulseless electrical activity [None]
  - Partial seizures [None]
